FAERS Safety Report 18033769 (Version 1)
Quarter: 2020Q3

REPORT INFORMATION
  Report Type: Spontaneous
  Country: CA (occurrence: CA)
  Receive Date: 20200716
  Receipt Date: 20200716
  Transmission Date: 20201103
  Serious: Yes (Other)
  Sender: FDA-Public Use
  Company Number: CA-ASTRAZENECA-2020SE88961

PATIENT
  Sex: Female

DRUGS (1)
  1. DURVALUMAB. [Suspect]
     Active Substance: DURVALUMAB
     Dosage: ASSUMING 1500MG
     Route: 042

REACTIONS (2)
  - Pneumonitis [Recovered/Resolved]
  - SARS-CoV-2 test negative [Unknown]
